FAERS Safety Report 5210872-9 (Version None)
Quarter: 2007Q1

REPORT INFORMATION
  Report Type: 
  Country: None (occurrence: None)
  Receive Date: 20070117
  Receipt Date: 20070108
  Transmission Date: 20070707
  Serious: Yes (Hospitalization, Other)
  Sender: FDA-Public Use
  Company Number: US-PFIZER INC-2007003536

PATIENT
  Sex: Male

DRUGS (3)
  1. CAMPTOSAR [Suspect]
  2. DECADRON [Concomitant]
  3. ANZEMET [Concomitant]

REACTIONS (2)
  - ANXIETY [None]
  - CHEST PAIN [None]
